FAERS Safety Report 12618890 (Version 1)
Quarter: 2016Q3

REPORT INFORMATION
  Report Type: Spontaneous
  Country: US (occurrence: US)
  Receive Date: 20160803
  Receipt Date: 20160803
  Transmission Date: 20161109
  Serious: Yes (Other)
  Sender: FDA-Public Use
  Company Number: US-MALLINCKRODT-T201603272

PATIENT
  Sex: Female

DRUGS (1)
  1. H.P. ACTHAR [Suspect]
     Active Substance: CORTICOTROPIN
     Indication: PRODUCT USED FOR UNKNOWN INDICATION
     Dosage: UNK FOR 10 DAYS
     Route: 065

REACTIONS (9)
  - Contusion [Unknown]
  - Pyrexia [Unknown]
  - Flushing [Unknown]
  - Fall [Unknown]
  - Abdominal pain upper [Unknown]
  - Confusional state [Unknown]
  - Somnolence [Unknown]
  - Diarrhoea [Unknown]
  - Hot flush [Unknown]
